FAERS Safety Report 20550752 (Version 1)
Quarter: 2022Q1

REPORT INFORMATION
  Report Type: Spontaneous
  Country: US (occurrence: US)
  Receive Date: 20220304
  Receipt Date: 20220304
  Transmission Date: 20220423
  Serious: Yes (Other)
  Sender: FDA-Public Use
  Company Number: US-CIPLA LTD.-2022US01150

PATIENT

DRUGS (6)
  1. CYCLOPHOSPHAMIDE [Suspect]
     Active Substance: CYCLOPHOSPHAMIDE
     Indication: Undifferentiated sarcoma
     Dosage: 4.2 G/M2, 2 CYCLES
     Route: 065
  2. CYCLOPHOSPHAMIDE [Suspect]
     Active Substance: CYCLOPHOSPHAMIDE
     Dosage: UNK (CYCLE 3)
     Route: 065
  3. VINCRISTINE [Suspect]
     Active Substance: VINCRISTINE
     Indication: Undifferentiated sarcoma
     Dosage: 2 MG FLAT DOSE, 2 CYCLES
     Route: 065
  4. VINCRISTINE [Suspect]
     Active Substance: VINCRISTINE
     Dosage: UNK (CYCLE 3)
     Route: 065
  5. DOXORUBICIN [Suspect]
     Active Substance: DOXORUBICIN
     Indication: Undifferentiated sarcoma
     Dosage: 75 MG/M2, 2 CYCLES
     Route: 065
  6. DOXORUBICIN [Suspect]
     Active Substance: DOXORUBICIN
     Dosage: UNK (CYCLE 3)
     Route: 065

REACTIONS (4)
  - Idiosyncratic drug reaction [Recovering/Resolving]
  - Febrile neutropenia [Unknown]
  - Organising pneumonia [Recovering/Resolving]
  - Pneumonia fungal [Recovering/Resolving]
